FAERS Safety Report 17893600 (Version 1)
Quarter: 2020Q2

REPORT INFORMATION
  Report Type: Spontaneous
  Country: FR (occurrence: FR)
  Receive Date: 20200615
  Receipt Date: 20200615
  Transmission Date: 20200714
  Serious: Yes (Death, Other)
  Sender: FDA-Public Use
  Company Number: FR-CADILA HEALTHCARE LIMITED-FR-ZYDUS-026360

PATIENT

DRUGS (10)
  1. MYCOPHENOLATE MOFETIL. [Suspect]
     Active Substance: MYCOPHENOLATE MOFETIL
     Indication: PROPHYLAXIS AGAINST GRAFT VERSUS HOST DISEASE
     Route: 065
  2. FLUDARABINE [Concomitant]
     Active Substance: FLUDARABINE PHOSPHATE
     Indication: PRODUCT USED FOR UNKNOWN INDICATION
     Dosage: 25 MILLIGRAM/SQ. METER,25 MG/M2, (D-6, D-5 AND D-4)
     Route: 065
  3. 5-FLUOROURACIL [Suspect]
     Active Substance: FLUOROURACIL
     Indication: BREAST CANCER
     Dosage: 500 MILLIGRAM/SQ. METER,500 MG/M2, CYCLIC (6 CYCLES)
     Route: 065
  4. CYCLOPHOSPHAMIDE. [Suspect]
     Active Substance: CYCLOPHOSPHAMIDE
     Indication: BREAST CANCER
     Dosage: 60 MILLIGRAM/KILOGRAM,60 MG/KG, (D-5 AND D-4)
     Route: 065
  5. ARACYTINE [Concomitant]
     Active Substance: CYTARABINE
     Indication: ACUTE MYELOID LEUKAEMIA
     Dosage: 2000 MILLIGRAM/SQ. METER,200 MG/M2, CYCLIC (5+7)
     Route: 065
     Dates: start: 200801
  6. CICLOSPORIN [Suspect]
     Active Substance: CYCLOSPORINE
     Indication: PROPHYLAXIS AGAINST GRAFT VERSUS HOST DISEASE
     Dosage: UNK UKN, UNK ()
     Route: 042
  7. IDARUBICIN [Suspect]
     Active Substance: IDARUBICIN
     Indication: PRODUCT USED FOR UNKNOWN INDICATION
     Dosage: 8 MILLIGRAM/SQ. METER,8 MG/M2, CYCLIC (5+7)
     Route: 065
     Dates: start: 200801
  8. EPIRUBICIN [Suspect]
     Active Substance: EPIRUBICIN
     Indication: BREAST CANCER
     Dosage: 100 MILLIGRAM/SQ. METER,100 MG/M2, CYCLIC (6 CYCLES)
     Route: 065
  9. IDARUBICIN [Suspect]
     Active Substance: IDARUBICIN
     Indication: PRODUCT USED FOR UNKNOWN INDICATION
     Dosage: 8 MILLIGRAM/SQ. METER,8 MG/M2, CYCLIC (5+7)
     Route: 065
     Dates: start: 200801
  10. ARACYTINE [Concomitant]
     Active Substance: CYTARABINE
     Indication: PRODUCT USED FOR UNKNOWN INDICATION
     Dosage: 200 MILLIGRAM/SQ. METER,200 MG/M2, CYCLIC (5+7)
     Route: 065
     Dates: start: 200801

REACTIONS (18)
  - Ejection fraction decreased [Unknown]
  - Depressed level of consciousness [Unknown]
  - Tricuspid valve incompetence [Unknown]
  - Graft versus host disease in gastrointestinal tract [Unknown]
  - Multiple organ dysfunction syndrome [Fatal]
  - Malignant pleural effusion [Unknown]
  - Chest pain [Unknown]
  - Liver disorder [Unknown]
  - Pneumonia [Unknown]
  - Right ventricular enlargement [Unknown]
  - Generalised oedema [Unknown]
  - Cardiotoxicity [Unknown]
  - Human herpesvirus 6 infection [Unknown]
  - Tachycardia [Unknown]
  - Second primary malignancy [Unknown]
  - Acute myeloid leukaemia [Unknown]
  - Pyrexia [Unknown]
  - Pericardial effusion [Unknown]
